FAERS Safety Report 6916664-4 (Version None)
Quarter: 2010Q3

REPORT INFORMATION
  Report Type: 
  Country: None (occurrence: None)
  Receive Date: 20100809
  Receipt Date: 20100809
  Transmission Date: 20110219
  Serious: No
  Sender: FDA-Public Use
  Company Number: None

PATIENT
  Sex: Male
  Weight: 78 kg

DRUGS (1)
  1. PROPECIA [Suspect]
     Indication: ALOPECIA
     Dosage: 1 MG DAY BY DAY BUCCAL
     Route: 002
     Dates: start: 20011105, end: 20060306

REACTIONS (3)
  - HYPOTHALAMO-PITUITARY DISORDER [None]
  - OSTEOPOROSIS [None]
  - TESTICULAR DISORDER [None]
